FAERS Safety Report 20623935 (Version 1)
Quarter: 2022Q1

REPORT INFORMATION
  Report Type: Spontaneous
  Country: CA (occurrence: None)
  Receive Date: 20220322
  Receipt Date: 20220322
  Transmission Date: 20220424
  Serious: No
  Sender: FDA-Public Use
  Company Number: CA-ROCHE-2397850

PATIENT
  Age: 30 Year
  Sex: Female

DRUGS (2)
  1. OCREVUS [Suspect]
     Active Substance: OCRELIZUMAB
     Indication: Relapsing-remitting multiple sclerosis
     Route: 042
     Dates: start: 20190812
  2. OCREVUS [Suspect]
     Active Substance: OCRELIZUMAB
     Route: 042

REACTIONS (10)
  - Infusion related reaction [Recovered/Resolved]
  - Muscle spasms [Not Recovered/Not Resolved]
  - Dysphagia [Unknown]
  - Rhinorrhoea [Not Recovered/Not Resolved]
  - Depression [Recovered/Resolved]
  - Pain in extremity [Recovered/Resolved]
  - Phlebitis [Not Recovered/Not Resolved]
  - Vein collapse [Not Recovered/Not Resolved]
  - Arthralgia [Recovered/Resolved]
  - COVID-19 [Recovered/Resolved]

NARRATIVE: CASE EVENT DATE: 20190812
